FAERS Safety Report 5879366-1 (Version None)
Quarter: 2008Q3

REPORT INFORMATION
  Report Type: 
  Country: None (occurrence: None)
  Receive Date: 20080912
  Receipt Date: 20080904
  Transmission Date: 20090109
  Serious: Yes (Hospitalization)
  Sender: FDA-Public Use
  Company Number: A0747142A

PATIENT
  Age: 80 Year
  Sex: Male
  Weight: 104.5 kg

DRUGS (1)
  1. AVANDIA [Suspect]
     Dates: start: 20000101, end: 20070101

REACTIONS (3)
  - CARDIAC ASSISTANCE DEVICE USER [None]
  - CEREBROVASCULAR ACCIDENT [None]
  - INFARCTION [None]
